FAERS Safety Report 8481319-4 (Version None)
Quarter: 2012Q2

REPORT INFORMATION
  Report Type: 
  Country: None (occurrence: None)
  Receive Date: 20120622
  Receipt Date: 20120329
  Transmission Date: 20120825
  Serious: Yes (Hospitalization, Other)
  Sender: FDA-Public Use
  Company Number: GB-025713

PATIENT
  Age: 68 Year
  Sex: Female
  Weight: 62 kg

DRUGS (8)
  1. OMEPRAZOLE [Concomitant]
  2. MORPHINE [Concomitant]
  3. FYBOGEL [Concomitant]
  4. RITUXIMAB (RITUXIMAB) [Suspect]
     Indication: CHRONIC LYMPHOCYTIC LEUKAEMIA
     Dosage: INTRAVENOUS (NOT OTHERWISE SPECIFIED)
     Route: 042
     Dates: start: 20091105, end: 20091207
  5. BETAHISTINE [Concomitant]
  6. CALCIUM CARBONATE [Concomitant]
  7. ASPIRIN [Concomitant]
  8. LEUKERAN (CHLORAMBUCIL) (TABLET), 903345 [Suspect]
     Dosage: 16 MG DAYS 1-7 OF EACH CYCLE (16 MILLIGRAM)  ORAL
     Route: 048
     Dates: start: 20091105, end: 20091207

REACTIONS (5)
  - FATIGUE [None]
  - WEIGHT DECREASED [None]
  - PRESYNCOPE [None]
  - PALPITATIONS [None]
  - LOSS OF CONSCIOUSNESS [None]
